FAERS Safety Report 5436065-8 (Version None)
Quarter: 2007Q3

REPORT INFORMATION
  Report Type: 
  Country: None (occurrence: None)
  Receive Date: 20070831
  Receipt Date: 20070829
  Transmission Date: 20080115
  Serious: Yes (Death)
  Sender: FDA-Public Use
  Company Number: US-ELI_LILLY_AND_COMPANY-US200708006759

PATIENT
  Age: 30 Year
  Sex: Male

DRUGS (2)
  1. SYMBYAX [Suspect]
     Dosage: UNK, UNK
     Dates: start: 20070729
  2. AMPHETAMINE AND DEXTROAMPHETAMINE SALTS [Concomitant]

REACTIONS (1)
  - DEATH [None]
